FAERS Safety Report 5589974-3 (Version None)
Quarter: 2008Q1

REPORT INFORMATION
  Report Type: 
  Country: None (occurrence: None)
  Receive Date: 20080114
  Receipt Date: 20080102
  Transmission Date: 20080703
  Serious: Yes (Other)
  Sender: FDA-Public Use
  Company Number: GB-WYE-H01923808

PATIENT
  Age: 23 Year
  Sex: Male

DRUGS (4)
  1. EFFEXOR [Suspect]
     Dosage: UNKNOWN
  2. CODEINE PHOSPHATE/PARACETAMOL [Suspect]
     Dosage: UNKNOWN
  3. CETIRIZINE HCL [Suspect]
     Dosage: UNKNOWN
  4. NEFOPAM [Suspect]
     Dosage: UNKNOWN

REACTIONS (2)
  - CONVULSION [None]
  - FALL [None]
